FAERS Safety Report 7434126-5 (Version None)
Quarter: 2011Q2

REPORT INFORMATION
  Report Type: 
  Country: None (occurrence: None)
  Receive Date: 20110425
  Receipt Date: 20110418
  Transmission Date: 20111010
  Serious: No
  Sender: FDA-Public Use
  Company Number: US-PFIZER INC-2011084547

PATIENT
  Sex: Female
  Weight: 65.76 kg

DRUGS (2)
  1. ACETAMINOPHEN [Concomitant]
     Indication: BACK PAIN
     Dosage: UNK
  2. LYRICA [Suspect]
     Indication: NEUROPATHY PERIPHERAL
     Dosage: 50 MG, 1X/DAY
     Route: 048
     Dates: start: 20110201

REACTIONS (3)
  - MUSCLE SPASMS [None]
  - BREAST PAIN [None]
  - BREAST SWELLING [None]
